FAERS Safety Report 8211721-7 (Version None)
Quarter: 2012Q1

REPORT INFORMATION
  Report Type: 
  Country: None (occurrence: None)
  Receive Date: 20120315
  Receipt Date: 20120307
  Transmission Date: 20120608
  Serious: Yes (Hospitalization)
  Sender: FDA-Public Use
  Company Number: US-JNJFOC-20090307044

PATIENT
  Sex: Female
  Weight: 89.4 kg

DRUGS (17)
  1. LEXAPRO [Suspect]
     Indication: POST-TRAUMATIC STRESS DISORDER
     Route: 048
  2. AMBIEN [Suspect]
     Indication: INSOMNIA
     Route: 048
  3. LYRICA [Suspect]
     Indication: FIBROMYALGIA
     Route: 048
  4. CLONAZEPAM [Suspect]
     Indication: BIPOLAR DISORDER
     Route: 048
  5. IBUPROFEN [Suspect]
     Indication: FIBROMYALGIA
     Route: 048
  6. PLACEBO [Suspect]
     Route: 048
     Dates: start: 20081129, end: 20081224
  7. LEXAPRO [Suspect]
     Indication: BIPOLAR DISORDER
     Route: 048
  8. ROBAXIN [Suspect]
     Indication: FIBROMYALGIA
  9. ZESTORETIC [Suspect]
     Indication: HYPERTENSION
     Dosage: 20/12.5 DAILY
     Route: 048
     Dates: start: 20081204
  10. DESVENLAFAXINE SUCCINATE MONOHYDRATE [Suspect]
     Indication: MENOPAUSAL SYMPTOMS
     Route: 048
     Dates: start: 20080909, end: 20081122
  11. PLACEBO [Suspect]
     Indication: MENOPAUSAL SYMPTOMS
     Route: 048
     Dates: start: 20080909, end: 20081122
  12. LORATADINE [Suspect]
     Indication: SEASONAL ALLERGY
     Route: 048
  13. VICODIN [Suspect]
     Indication: FIBROMYALGIA
     Dosage: 5/500 AS NEEDED
     Route: 048
  14. VIVELLE [Suspect]
     Indication: HORMONE REPLACEMENT THERAPY
     Route: 062
  15. DESVENLAFAXINE SUCCINATE MONOHYDRATE [Suspect]
     Route: 048
     Dates: start: 20081129, end: 20081224
  16. ABILIFY [Suspect]
     Indication: BIPOLAR I DISORDER
     Route: 048
  17. FLUTICASONE [Suspect]
     Indication: SEASONAL ALLERGY
     Route: 055

REACTIONS (7)
  - HYPERTENSION [None]
  - MENTAL STATUS CHANGES [None]
  - HYPOKALAEMIA [None]
  - HEADACHE [None]
  - DYSARTHRIA [None]
  - ASTHENIA [None]
  - POLYMEDICATION [None]
